FAERS Safety Report 15991458 (Version 2)
Quarter: 2019Q2

REPORT INFORMATION
  Report Type: Report from Study
  Country: CA (occurrence: CA)
  Receive Date: 20190221
  Receipt Date: 20190621
  Transmission Date: 20190711
  Serious: Yes (Death)
  Sender: FDA-Public Use
  Company Number: CA-HLSUS-2019-CA-000163

PATIENT
  Age: 52 Year
  Sex: Male
  Weight: 130 kg

DRUGS (1)
  1. CLOZARIL [Suspect]
     Active Substance: CLOZAPINE
     Indication: SCHIZOPHRENIA
     Dosage: 400MG
     Route: 048
     Dates: start: 19960730, end: 20021228

REACTIONS (4)
  - Neutrophil count increased [Unknown]
  - Lymphocyte count decreased [Unknown]
  - Lung neoplasm malignant [Fatal]
  - Monocyte count increased [Unknown]

NARRATIVE: CASE EVENT DATE: 201710
